FAERS Safety Report 10329820 (Version 6)
Quarter: 2016Q1

REPORT INFORMATION
  Report Type: Spontaneous
  Country: US (occurrence: US)
  Receive Date: 20140721
  Receipt Date: 20160125
  Transmission Date: 20160525
  Serious: Yes (Hospitalization, Other)
  Sender: FDA-Public Use
  Company Number: US-JNJFOC-20140711720

PATIENT
  Age: 68 Year
  Sex: Male
  Weight: 105 kg

DRUGS (8)
  1. IMBRUVICA [Suspect]
     Active Substance: IBRUTINIB
     Indication: CHRONIC LYMPHOCYTIC LEUKAEMIA
     Route: 065
     Dates: start: 201409, end: 201506
  2. FISH OIL [Concomitant]
     Active Substance: FISH OIL
  3. IMBRUVICA [Suspect]
     Active Substance: IBRUTINIB
     Indication: CHRONIC LYMPHOCYTIC LEUKAEMIA
     Route: 065
     Dates: start: 20140416, end: 2014
  4. IMBRUVICA [Suspect]
     Active Substance: IBRUTINIB
     Indication: CHRONIC LYMPHOCYTIC LEUKAEMIA
     Route: 065
     Dates: start: 2014, end: 201409
  5. IMBRUVICA [Suspect]
     Active Substance: IBRUTINIB
     Indication: CHRONIC LYMPHOCYTIC LEUKAEMIA
     Route: 065
     Dates: start: 201506, end: 201508
  6. ASPIRIN. [Suspect]
     Active Substance: ASPIRIN
     Indication: PRODUCT USED FOR UNKNOWN INDICATION
     Route: 065
  7. HEPARIN [Concomitant]
     Active Substance: HEPARIN SODIUM
     Indication: ANTICOAGULANT THERAPY
  8. ELIQUIS [Suspect]
     Active Substance: APIXABAN
     Indication: PRODUCT USED FOR UNKNOWN INDICATION

REACTIONS (11)
  - Upper gastrointestinal haemorrhage [Recovered/Resolved]
  - Duodenal ulcer [Recovered/Resolved]
  - Rectal haemorrhage [Unknown]
  - Haemorrhage [Not Recovered/Not Resolved]
  - Gastric ulcer [Recovered/Resolved]
  - Pulmonary mass [Not Recovered/Not Resolved]
  - Lung infiltration [Not Recovered/Not Resolved]
  - White blood cell count abnormal [Unknown]
  - Haemoptysis [Unknown]
  - Incorrect dose administered [Unknown]
  - Vomiting [Unknown]

NARRATIVE: CASE EVENT DATE: 2014
